FAERS Safety Report 18439327 (Version 1)
Quarter: 2020Q4

REPORT INFORMATION
  Report Type: Spontaneous
  Country: DK (occurrence: DK)
  Receive Date: 20201028
  Receipt Date: 20201028
  Transmission Date: 20210114
  Serious: Yes (Disabling)
  Sender: FDA-Public Use
  Company Number: DK-BAXTER-2020BAX021323

PATIENT
  Age: 77 Year
  Sex: Female

DRUGS (4)
  1. SENDOXAN [Suspect]
     Active Substance: CYCLOPHOSPHAMIDE
     Indication: RENAL AMYLOIDOSIS
     Dosage: DOSAGE: AFTER WRITTEN INSTRUCTIONS.
     Route: 048
     Dates: start: 20190910
  2. VELCADE [Suspect]
     Active Substance: BORTEZOMIB
     Indication: RENAL AMYLOIDOSIS
     Dosage: DOSAGE: AFTER WRITTEN INSTRUCTIONS.
     Route: 065
     Dates: start: 20190910
  3. METOPROLOL SUCCINATE HEXAL [Concomitant]
     Indication: HYPERTENSION
     Dosage: STRENGTH: 25 MG.
     Route: 048
     Dates: start: 20190911
  4. RAMIPRIL TEVA [Concomitant]
     Active Substance: RAMIPRIL
     Indication: HYPERTENSION
     Dosage: STRENGTH: 10 MG.
     Route: 048
     Dates: start: 20181105

REACTIONS (3)
  - Condition aggravated [Recovering/Resolving]
  - Osteonecrosis [Not Recovered/Not Resolved]
  - Deafness [Recovering/Resolving]

NARRATIVE: CASE EVENT DATE: 201912
